FAERS Safety Report 14438527 (Version 1)
Quarter: 2018Q1

REPORT INFORMATION
  Report Type: Spontaneous
  Country: US (occurrence: US)
  Receive Date: 20180125
  Receipt Date: 20180125
  Transmission Date: 20180509
  Serious: Yes (Other)
  Sender: FDA-Public Use
  Company Number: US-PFIZER INC-2018024209

PATIENT

DRUGS (2)
  1. ANBESOL REGULAR STRENGTH GEL [Suspect]
     Active Substance: BENZOCAINE
     Dosage: UNK
  2. BENZYL ALCOHOL [Suspect]
     Active Substance: BENZYL ALCOHOL

REACTIONS (2)
  - Alcohol poisoning [Unknown]
  - Reaction to excipient [Unknown]
